FAERS Safety Report 9972148 (Version 1)
Quarter: 2014Q1

REPORT INFORMATION
  Report Type: Report from Study
  Country: US (occurrence: US)
  Receive Date: 20140306
  Receipt Date: 20140306
  Transmission Date: 20141002
  Serious: Yes (Other)
  Sender: FDA-Public Use
  Company Number: US-ABBVIE-13P-163-1148550-00

PATIENT
  Age: 41 Year
  Sex: Male

DRUGS (9)
  1. HUMIRA [Suspect]
     Indication: ANKYLOSING SPONDYLITIS
     Dates: start: 2012, end: 201303
  2. HUMIRA [Suspect]
     Dates: start: 201304
  3. LYRICA [Concomitant]
     Indication: FIBROMYALGIA
  4. FENTANYL [Concomitant]
     Indication: FIBROMYALGIA
  5. FENTANYL [Concomitant]
     Indication: ANKYLOSING SPONDYLITIS
  6. RITALIN [Concomitant]
     Indication: ADVERSE DRUG REACTION
  7. RITALIN [Concomitant]
     Indication: SOMNOLENCE
  8. RITALIN [Concomitant]
     Indication: PROPHYLAXIS
  9. OXYCODONE [Concomitant]
     Indication: PAIN

REACTIONS (3)
  - Leukopenia [Not Recovered/Not Resolved]
  - White blood cell count decreased [Not Recovered/Not Resolved]
  - Pancytopenia [Not Recovered/Not Resolved]
